FAERS Safety Report 6672544-3 (Version None)
Quarter: 2010Q2

REPORT INFORMATION
  Report Type: 
  Country: None (occurrence: None)
  Receive Date: 20100408
  Receipt Date: 20100326
  Transmission Date: 20101027
  Serious: Yes (Death, Other)
  Sender: FDA-Public Use
  Company Number: US-BRISTOL-MYERS SQUIBB COMPANY-15037146

PATIENT
  Age: 4 Decade
  Sex: Male

DRUGS (4)
  1. ABILIFY [Interacting]
     Indication: SCHIZOPHRENIA
  2. PROLIXIN D INJ [Interacting]
     Indication: SCHIZOPHRENIA, PARANOID TYPE
  3. PROLIXIN D [Interacting]
     Indication: SCHIZOPHRENIA, PARANOID TYPE
     Route: 048
  4. HALDOL [Suspect]
     Indication: SCHIZOPHRENIA, PARANOID TYPE
     Dosage: INJECTION AND WAS ALSO RECEIVING ORALLY

REACTIONS (2)
  - CARDIAC DEATH [None]
  - DRUG INTERACTION [None]
